FAERS Safety Report 4521763-0 (Version None)
Quarter: 2004Q4

REPORT INFORMATION
  Report Type: 
  Country: None (occurrence: None)
  Receive Date: 20041206
  Receipt Date: 20041119
  Transmission Date: 20050328
  Serious: Yes (Other)
  Sender: FDA-Public Use
  Company Number: 2004-BP-12167RO

PATIENT
  Age: 31 Year
  Sex: Female

DRUGS (1)
  1. ALBUTEROL [Suspect]
     Indication: PREMATURE LABOUR
     Dosage: 35 MG OVER 48 HRS PER INFUSION, IV
     Route: 042

REACTIONS (2)
  - ACUTE MYOCARDIAL INFARCTION [None]
  - DRUG EXPOSURE DURING PREGNANCY [None]
